FAERS Safety Report 12992981 (Version 4)
Quarter: 2016Q4

REPORT INFORMATION
  Report Type: Spontaneous
  Country: US (occurrence: US)
  Receive Date: 20161202
  Receipt Date: 20161214
  Transmission Date: 20170207
  Serious: Yes (Hospitalization, Other)
  Sender: FDA-Public Use
  Company Number: US-AUROBINDO-AUR-APL-2016-14528

PATIENT
  Age: 44 Year
  Sex: Male

DRUGS (1)
  1. METHYLPREDNISOLONE. [Suspect]
     Active Substance: METHYLPREDNISOLONE
     Indication: MUSCULOSKELETAL PAIN
     Dosage: UNK, 10-DAY DOSE
     Route: 065

REACTIONS (13)
  - Pyrexia [Recovering/Resolving]
  - Diarrhoea [Recovering/Resolving]
  - Decreased appetite [Recovering/Resolving]
  - Chills [Recovering/Resolving]
  - Nausea [Recovering/Resolving]
  - Tenderness [Recovering/Resolving]
  - Abdominal pain upper [Recovering/Resolving]
  - Hepatitis [Recovering/Resolving]
  - Rhinorrhoea [Recovering/Resolving]
  - Vomiting [Recovering/Resolving]
  - Malaise [Recovering/Resolving]
  - Varicella zoster virus infection [Recovering/Resolving]
  - Murphy^s sign positive [Recovering/Resolving]
